FAERS Safety Report 6910733-0 (Version None)
Quarter: 2010Q3

REPORT INFORMATION
  Report Type: 
  Country: None (occurrence: None)
  Receive Date: 20100806
  Receipt Date: 20100730
  Transmission Date: 20110219
  Serious: Yes (Other)
  Sender: FDA-Public Use
  Company Number: JP-ROCHE-718953

PATIENT
  Sex: Female
  Weight: 42 kg

DRUGS (11)
  1. TOCILIZUMAB [Suspect]
     Indication: RHEUMATOID ARTHRITIS
     Route: 041
     Dates: start: 20091009, end: 20091009
  2. TOCILIZUMAB [Suspect]
     Route: 041
     Dates: start: 20091113, end: 20091113
  3. TOCILIZUMAB [Suspect]
     Route: 041
     Dates: start: 20091211, end: 20091211
  4. MEDROL [Concomitant]
     Route: 048
     Dates: start: 20091112
  5. PREDNISOLONE [Concomitant]
     Dosage: PERORAL AGENT
     Route: 048
     Dates: start: 20091113, end: 20091210
  6. PREDNISOLONE [Concomitant]
     Route: 048
     Dates: start: 20091211
  7. SELBEX [Concomitant]
     Dosage: PERORAL AGENT
     Route: 048
  8. AMLODIPINE BESYLATE [Concomitant]
     Route: 048
  9. RENIVEZE [Concomitant]
     Route: 048
  10. LORFENAMIN [Concomitant]
     Dosage: PERORAL AGENT
     Route: 048
  11. INDOMETHACIN SODIUM [Concomitant]
     Dosage: FORM: TAPE. DRUG REPORTED AS INTENURSE
     Route: 061

REACTIONS (1)
  - CARDIAC FAILURE [None]
